FAERS Safety Report 9888681 (Version 2)
Quarter: 2014Q2

REPORT INFORMATION
  Report Type: Spontaneous
  Country: JP (occurrence: JP)
  Receive Date: 20140211
  Receipt Date: 20140516
  Transmission Date: 20141212
  Serious: Yes (Hospitalization)
  Sender: FDA-Public Use
  Company Number: JP-SA-2014SA013543

PATIENT
  Age: 53 Year
  Sex: Female
  Weight: 55 kg

DRUGS (6)
  1. ELPLAT [Suspect]
     Indication: COLON CANCER
     Route: 041
     Dates: start: 20131220, end: 20131220
  2. CALCIUM LEVOFOLINATE [Suspect]
     Indication: COLON CANCER
     Route: 041
     Dates: start: 20131220, end: 20131220
  3. 5-FU [Suspect]
     Indication: COLON CANCER
     Route: 040
     Dates: start: 20131220, end: 20131220
  4. 5-FU [Suspect]
     Indication: COLON CANCER
     Route: 041
     Dates: start: 20131220, end: 20131220
  5. AVASTIN [Suspect]
     Indication: COLON CANCER
     Route: 041
     Dates: start: 20131220, end: 20131220
  6. GASTER D [Concomitant]
     Dates: start: 20131220

REACTIONS (1)
  - Jaundice cholestatic [Recovered/Resolved]
